FAERS Safety Report 8385102-X (Version None)
Quarter: 2012Q2

REPORT INFORMATION
  Report Type: 
  Country: None (occurrence: None)
  Receive Date: 20120524
  Receipt Date: 20120517
  Transmission Date: 20120825
  Serious: Yes (Other)
  Sender: FDA-Public Use
  Company Number: US-BAXTER-2012BAX006275

PATIENT
  Age: 72 Year
  Sex: Male

DRUGS (3)
  1. DOBUTAMINE HYDROCHLORIDE IN DEXTROSE 5% [Suspect]
     Dosage: 10 MCG/KG
     Route: 042
  2. WARFARIN SODIUM [Concomitant]
  3. DOBUTAMINE HYDROCHLORIDE IN DEXTROSE 5% [Suspect]
     Dosage: 20 MCG/KG
     Route: 042

REACTIONS (1)
  - HAEMORRHAGE INTRACRANIAL [None]
